FAERS Safety Report 23054400 (Version 1)
Quarter: 2023Q4

REPORT INFORMATION
  Report Type: Spontaneous
  Country: US (occurrence: None)
  Receive Date: 20231010
  Receipt Date: 20231010
  Transmission Date: 20240109
  Serious: Yes (Other)
  Sender: FDA-Public Use
  Company Number: None

PATIENT
  Age: 81 Year
  Sex: Female

DRUGS (1)
  1. INLYTA [Suspect]
     Active Substance: AXITINIB
     Indication: Renal cancer
     Dosage: FREQUENCY : TWICE A DAY;?
     Route: 048

REACTIONS (7)
  - Arthralgia [None]
  - Bone pain [None]
  - Pain [None]
  - Sensitivity to weather change [None]
  - Pelvic fracture [None]
  - Femur fracture [None]
  - Diarrhoea [None]

NARRATIVE: CASE EVENT DATE: 20231003
